FAERS Safety Report 14277925 (Version 1)
Quarter: 2017Q4

REPORT INFORMATION
  Report Type: Spontaneous
  Country: US (occurrence: US)
  Receive Date: 20171212
  Receipt Date: 20171212
  Transmission Date: 20180321
  Serious: No
  Sender: FDA-Public Use
  Company Number: US-BAUSCH-BL-2017-023543

PATIENT
  Sex: Female
  Weight: 50.85 kg

DRUGS (2)
  1. SYPRINE [Suspect]
     Active Substance: TRIENTINE HYDROCHLORIDE
     Indication: HEPATO-LENTICULAR DEGENERATION
     Route: 048
     Dates: start: 201509
  2. URSODIOL. [Concomitant]
     Active Substance: URSODIOL
     Indication: PROPHYLAXIS
     Dosage: MAY BE MAR/2015
     Route: 048
     Dates: start: 2015

REACTIONS (4)
  - Treatment noncompliance [Unknown]
  - Prescription drug used without a prescription [Unknown]
  - Exposure during pregnancy [Unknown]
  - No adverse event [Unknown]

NARRATIVE: CASE EVENT DATE: 2017
